FAERS Safety Report 8550886-4 (Version None)
Quarter: 2012Q3

REPORT INFORMATION
  Report Type: 
  Country: None (occurrence: None)
  Receive Date: 20120730
  Receipt Date: 20120216
  Transmission Date: 20120928
  Serious: No
  Sender: FDA-Public Use
  Company Number: US-GLAXOSMITHKLINE-A0967198A

PATIENT
  Age: 79 Year
  Sex: Female
  Weight: 72.7 kg

DRUGS (4)
  1. ZANTAC [Suspect]
     Indication: HYPERCHLORHYDRIA
     Dosage: 150MG PER DAY
  2. ROBINUL FORTE [Suspect]
     Indication: HIATUS HERNIA
     Dosage: 2MG PER DAY
     Dates: start: 20111101
  3. NORVASC [Suspect]
     Indication: BLOOD PRESSURE
     Dosage: 10MG PER DAY
  4. LIPITOR [Suspect]
     Indication: BLOOD CHOLESTEROL
     Dosage: 10MG PER DAY

REACTIONS (2)
  - HIATUS HERNIA [None]
  - NASOPHARYNGITIS [None]
